FAERS Safety Report 11583155 (Version 1)
Quarter: 2015Q4

REPORT INFORMATION
  Report Type: Spontaneous
  Country: US (occurrence: US)
  Receive Date: 20151001
  Receipt Date: 20151001
  Transmission Date: 20160304
  Serious: Yes (Other)
  Sender: FDA-Public Use
  Company Number: US-ROCHE-650274

PATIENT
  Age: 64 Year
  Sex: Male

DRUGS (4)
  1. PEGASYS [Suspect]
     Active Substance: PEGINTERFERON ALFA-2A
     Route: 065
  2. PEGASYS [Suspect]
     Active Substance: PEGINTERFERON ALFA-2A
     Indication: HEPATITIS C
     Dosage: FORM: PRE FILLED SYRINGE, OTHER INDICATION: CIRRHOSIS.
     Route: 065
  3. RIBAVIRIN. [Suspect]
     Active Substance: RIBAVIRIN
     Indication: HEPATITIS C
     Dosage: DIVIDED DOSES, THE PATIENT WAS IN WEEK 16 OF THERAPY, OTHER INDICATION: CIRRHOSIS.
     Route: 065
     Dates: start: 20090812, end: 20091125
  4. PEGASYS [Suspect]
     Active Substance: PEGINTERFERON ALFA-2A
     Dosage: THE PATIENT WAS IN WEEK 16 OF THERAPY.
     Route: 065

REACTIONS (13)
  - Blood glucose increased [Recovering/Resolving]
  - Dry mouth [Not Recovered/Not Resolved]
  - Pain [Unknown]
  - No adverse event [Unknown]
  - Fatigue [Not Recovered/Not Resolved]
  - Rash [Recovered/Resolved]
  - Myalgia [Not Recovered/Not Resolved]
  - No therapeutic response [Unknown]
  - Product preparation error [Unknown]
  - Arthralgia [Not Recovered/Not Resolved]
  - White blood cell count decreased [Unknown]
  - Sleep disorder [Not Recovered/Not Resolved]
  - Sleep disorder [Not Recovered/Not Resolved]

NARRATIVE: CASE EVENT DATE: 20090901
